FAERS Safety Report 9245153 (Version 1)
Quarter: 2013Q2

REPORT INFORMATION
  Report Type: Spontaneous
  Country: US (occurrence: US)
  Receive Date: 20130422
  Receipt Date: 20130422
  Transmission Date: 20140414
  Serious: Yes (Other)
  Sender: FDA-Public Use
  Company Number: US-PFIZER INC-2013121582

PATIENT
  Age: 35 Year
  Sex: Male
  Weight: 101.13 kg

DRUGS (9)
  1. GEODON [Suspect]
     Indication: BIPOLAR DISORDER
     Dosage: 80 MG, 3X/DAY
     Route: 048
     Dates: start: 2012, end: 201304
  2. GEODON [Interacting]
     Indication: TACHYPHRENIA
     Dosage: 80 MG, 3X/DAY
     Route: 048
     Dates: start: 20130415
  3. INSULIN [Interacting]
     Indication: DIABETES MELLITUS
     Dosage: UNK
  4. LAMICTAL [Concomitant]
     Indication: BIPOLAR DISORDER
     Dosage: 200 MG, 2X/DAY
  5. WELLBUTRIN [Concomitant]
     Indication: ANXIETY
     Dosage: 300 MG, DAILY
  6. WELLBUTRIN [Concomitant]
     Indication: DEPRESSION
  7. TOPAMAX [Concomitant]
     Indication: CONVULSION
     Dosage: 50 MG, 2X/DAY
  8. TOPAMAX [Concomitant]
     Indication: WEIGHT DECREASED
  9. LOMEXIN [Concomitant]
     Dosage: 200 MG, UNK

REACTIONS (11)
  - Drug interaction [Not Recovered/Not Resolved]
  - Blood glucose fluctuation [Not Recovered/Not Resolved]
  - Dyspnoea [Not Recovered/Not Resolved]
  - Tremor [Not Recovered/Not Resolved]
  - Diarrhoea [Not Recovered/Not Resolved]
  - Hyperhidrosis [Recovering/Resolving]
  - Insomnia [Recovered/Resolved]
  - Cold sweat [Unknown]
  - Feeling cold [Not Recovered/Not Resolved]
  - Pyrexia [Recovered/Resolved]
  - Off label use [Unknown]
